APPROVED DRUG PRODUCT: TOLTERODINE TARTRATE
Active Ingredient: TOLTERODINE TARTRATE
Strength: 1MG
Dosage Form/Route: TABLET;ORAL
Application: A203409 | Product #001 | TE Code: AB
Applicant: MACLEODS PHARMACEUTICALS LTD
Approved: Aug 31, 2015 | RLD: No | RS: No | Type: RX